FAERS Safety Report 10483629 (Version 1)
Quarter: 2014Q3

REPORT INFORMATION
  Report Type: Spontaneous
  Country: US (occurrence: None)
  Receive Date: 20140929
  Receipt Date: 20140929
  Transmission Date: 20150326
  Serious: Yes (Hospitalization, Other)
  Sender: FDA-Public Use
  Company Number: None

PATIENT
  Sex: Female

DRUGS (3)
  1. TRAMADOL 50MG [Suspect]
     Active Substance: TRAMADOL
     Indication: BACK PAIN
     Dosage: 2 PILLS EVERY 8 HOURS, THREE TIMES DAILY
     Dates: start: 20140101, end: 20140910
  2. TRAMADOL 50MG [Suspect]
     Active Substance: TRAMADOL
     Dosage: 2 PILLS EVERY 8 HOURS, THREE TIMES DAILY
     Dates: start: 20140101, end: 20140910
  3. TRAMADOL 50MG [Suspect]
     Active Substance: TRAMADOL
     Indication: INTERVERTEBRAL DISC DEGENERATION
     Dosage: 2 PILLS EVERY 8 HOURS, THREE TIMES DAILY
     Dates: start: 20140101, end: 20140910

REACTIONS (2)
  - Tongue biting [None]
  - Convulsion [None]

NARRATIVE: CASE EVENT DATE: 20140910
